FAERS Safety Report 8217630-1 (Version None)
Quarter: 2012Q1

REPORT INFORMATION
  Report Type: 
  Country: None (occurrence: None)
  Receive Date: 20120305
  Receipt Date: 20111010
  Transmission Date: 20120608
  Serious: No
  Sender: FDA-Public Use
  Company Number: 1000024584

PATIENT
  Age: 62 Year
  Sex: Female

DRUGS (6)
  1. DALIRESP [Suspect]
     Indication: CHRONIC OBSTRUCTIVE PULMONARY DISEASE
     Dosage: 250 MCG (250 MCG, 1 IN 1 D), ORAL
     Route: 048
     Dates: start: 20111003
  2. DULCOLAX (BISACODYL) (BISACODYL) [Concomitant]
  3. ESTROGEN (ESTRADIOL) (ESTRADIOL) [Concomitant]
  4. ALBUTEROL (ALBUTEROL) (ALBUTEROL) [Concomitant]
  5. MAGNESIUM (MAGNESIUM) (MAGNESIUM) [Concomitant]
  6. ADVAIR (SERETIDE) (SERETIDE) [Concomitant]

REACTIONS (4)
  - ANXIETY [None]
  - DIARRHOEA [None]
  - ANGER [None]
  - MOOD SWINGS [None]
